FAERS Safety Report 4485070-7 (Version None)
Quarter: 2004Q4

REPORT INFORMATION
  Report Type: 
  Country: None (occurrence: None)
  Receive Date: 20040921
  Receipt Date: 20031031
  Transmission Date: 20050328
  Serious: Yes (Death)
  Sender: FDA-Public Use
  Company Number: 163-20785-03030015(1)

PATIENT
  Age: 61 Year
  Sex: Male

DRUGS (2)
  1. THALOMID [Suspect]
     Indication: METASTATIC MALIGNANT MELANOMA
     Dosage: 200 MG, QD, ORAL
     Route: 048
     Dates: start: 20021218, end: 20030115
  2. INTERFERON ALPHA (INTERFERON ALFA) [Suspect]
     Indication: METASTATIC MALIGNANT MELANOMA

REACTIONS (2)
  - DEATH [None]
  - DISEASE PROGRESSION [None]
